FAERS Safety Report 9848349 (Version 1)
Quarter: 2013Q4

REPORT INFORMATION
  Report Type: Spontaneous
  Country: US (occurrence: None)
  Receive Date: 20131226
  Receipt Date: 20131226
  Transmission Date: 20140711
  Serious: Yes (Other)
  Sender: FDA-Public Use
  Company Number: PHEH2013US018028

PATIENT
  Age: 83 Year
  Sex: Male

DRUGS (8)
  1. ARCAPTA (INDACATEROL) UNKNOWN [Suspect]
     Route: 048
     Dates: start: 20130822, end: 20130826
  2. LASIX (FUROSEMIDE) [Concomitant]
  3. POTASSIUM (POTASSIUM) [Concomitant]
  4. VITAMIN D (ERGOCALCIFEROL) [Concomitant]
  5. DIGOXIN (DIGOXIN) [Concomitant]
  6. CELEBREX (CELECOXIB) [Concomitant]
  7. CRESTOR (ROSUVASTATIN CALCIUM) [Concomitant]
  8. STOOL SOFTENER (DOCUSATE SODIUM) [Concomitant]

REACTIONS (7)
  - Sensation of foreign body [None]
  - Choking sensation [None]
  - Drooling [None]
  - Oropharyngeal pain [None]
  - Cough [None]
  - Throat tightness [None]
  - Throat irritation [None]
